FAERS Safety Report 21626891 (Version 3)
Quarter: 2024Q4

REPORT INFORMATION
  Report Type: Report from Study
  Country: US (occurrence: US)
  Receive Date: 20221122
  Receipt Date: 20241018
  Transmission Date: 20250115
  Serious: Yes (Other)
  Sender: NOVARTIS
  Company Number: US-002147023-NVSC2022US261728

PATIENT
  Sex: Male
  Weight: 86.18 kg

DRUGS (7)
  1. MAYZENT [Suspect]
     Active Substance: SIPONIMOD
     Indication: Product used for unknown indication
     Dosage: 2 MG, QD
     Route: 048
  2. KESIMPTA [Suspect]
     Active Substance: OFATUMUMAB
     Indication: Multiple sclerosis
     Dosage: UNK
     Route: 058
     Dates: start: 20220412
  3. KESIMPTA [Suspect]
     Active Substance: OFATUMUMAB
     Dosage: UNK
     Route: 058
  4. METHYLPREDNISOLONE [Concomitant]
     Active Substance: METHYLPREDNISOLONE
     Indication: Product used for unknown indication
     Dosage: 1000 MG, QD, FOR 5 DAYS
     Route: 065
     Dates: start: 20221108
  5. OXYBUTYNIN CHLORIDE [Concomitant]
     Active Substance: OXYBUTYNIN CHLORIDE
     Indication: Product used for unknown indication
     Dosage: 1 DOSAGE FORM, BID, MAY INCREASE BY 1 TAB. PRN FOR TOTAL OF TID , 15 MG
     Route: 048
     Dates: start: 20221018
  6. LORAZEPAM [Concomitant]
     Active Substance: LORAZEPAM
     Indication: Product used for unknown indication
     Dosage: 1 DOSAGE FORM, BID, TAKE 30 MIN PRIOR TO STEROID INFUSION MAY REPEAT PRN AFTER INFUSION IS COMPLETED
     Route: 048
     Dates: start: 20221020
  7. IBUPROFEN [Concomitant]
     Active Substance: IBUPROFEN
     Indication: Product used for unknown indication
     Dosage: 1 DOSAGE FORM, Q8H
     Route: 048
     Dates: start: 20210707

REACTIONS (13)
  - Drug dependence [Unknown]
  - Gait inability [Recovering/Resolving]
  - Movement disorder [Recovering/Resolving]
  - Diarrhoea [Recovering/Resolving]
  - Scoliosis [Unknown]
  - Pollakiuria [Unknown]
  - Muscle spasticity [Unknown]
  - Fall [Unknown]
  - Injection site pain [Unknown]
  - Asthenia [Unknown]
  - Tinnitus [Unknown]
  - Balance disorder [Unknown]
  - Fatigue [Unknown]
